FAERS Safety Report 12797007 (Version 3)
Quarter: 2016Q4

REPORT INFORMATION
  Report Type: Report from Study
  Country: None (occurrence: US)
  Receive Date: 20160929
  Receipt Date: 20161117
  Transmission Date: 20170207
  Serious: Yes (Death, Hospitalization, Other)
  Sender: FDA-Public Use
  Company Number: US-ABBVIE-16P-163-1730069-00

PATIENT
  Age: 50 Year
  Sex: Male

DRUGS (1)
  1. VENCLEXTA [Suspect]
     Active Substance: VENETOCLAX
     Indication: CHRONIC LYMPHOCYTIC LEUKAEMIA
     Route: 048
     Dates: start: 20160901, end: 2016

REACTIONS (5)
  - Transfusion [Unknown]
  - Fatigue [Recovered/Resolved]
  - Platelet transfusion [Unknown]
  - Chronic lymphocytic leukaemia [Fatal]
  - Pyrexia [Unknown]

NARRATIVE: CASE EVENT DATE: 2016
